FAERS Safety Report 6543317-7 (Version None)
Quarter: 2010Q1

REPORT INFORMATION
  Report Type: 
  Country: None (occurrence: None)
  Receive Date: 20100106
  Receipt Date: 20091220
  Transmission Date: 20100710
  Serious: No
  Sender: FDA-Public Use
  Company Number: 2009-00901

PATIENT
  Sex: Female
  Weight: 72.5755 kg

DRUGS (1)
  1. COLD REMEDY ORAL MIST [Suspect]
     Dosage: SPRING OR SUMMER OF 2009

REACTIONS (2)
  - AGEUSIA [None]
  - ANOSMIA [None]
